FAERS Safety Report 5151966-6 (Version None)
Quarter: 2006Q4

REPORT INFORMATION
  Report Type: 
  Country: None (occurrence: None)
  Receive Date: 20061109
  Receipt Date: 20061027
  Transmission Date: 20070319
  Serious: Yes (Other)
  Sender: FDA-Public Use
  Company Number: 2006134145

PATIENT
  Age: 45 Year
  Sex: Female

DRUGS (9)
  1. ARTHROTEC [Suspect]
     Indication: ARTHRALGIA
     Dosage: ORAL
     Route: 048
     Dates: start: 20060215, end: 20060301
  2. MIRTAZAPINE [Suspect]
     Indication: DEPRESSION
     Dosage: 15 MG (15 MG, 1 IN 1 D), ORAL
     Route: 048
     Dates: start: 20060130, end: 20060301
  3. CITALOPRAM HYDROBROMIDE [Concomitant]
  4. FOLACIN                  (CALCIUM PHOSPHATE, FOLIC ACID) [Concomitant]
  5. ACETAMINOPHEN [Concomitant]
  6. BEHEPAN                       (CYANOCOBALAMIN) [Concomitant]
  7. DUROFERON                  (FERROUS SULFATE) [Concomitant]
  8. METADON                  (METHADONE HYDROCHLORIDE) [Concomitant]
  9. CALCICHEW-D3                   (CALCIUM CARBONATE, COLECALCIFEROL) [Concomitant]

REACTIONS (4)
  - DEAFNESS NEUROSENSORY [None]
  - DEAFNESS UNILATERAL [None]
  - DIZZINESS [None]
  - SUDDEN HEARING LOSS [None]
